FAERS Safety Report 12391372 (Version 3)
Quarter: 2018Q1

REPORT INFORMATION
  Report Type: Spontaneous
  Country: ID (occurrence: ID)
  Receive Date: 20160520
  Receipt Date: 20180110
  Transmission Date: 20180508
  Serious: Yes (Life-Threatening, Hospitalization, Other)
  Sender: FDA-Public Use
  Company Number: ID-ASTRAZENECA-2016SE52241

PATIENT
  Sex: Male

DRUGS (2)
  1. BRILINTA [Suspect]
     Active Substance: TICAGRELOR
     Indication: PERCUTANEOUS CORONARY INTERVENTION
     Route: 048
  2. THROMBO ASPILET [Concomitant]

REACTIONS (4)
  - Melaena [Unknown]
  - Haematuria [Unknown]
  - Haemorrhage [Unknown]
  - Haemorrhagic anaemia [Unknown]
